FAERS Safety Report 4899173-6 (Version None)
Quarter: 2006Q1

REPORT INFORMATION
  Report Type: 
  Country: None (occurrence: None)
  Receive Date: 20060130
  Receipt Date: 20060119
  Transmission Date: 20060701
  Serious: Yes (Hospitalization, Other)
  Sender: FDA-Public Use
  Company Number: 2002JP006467

PATIENT
  Age: 30 Year
  Sex: Male
  Weight: 47 kg

DRUGS (13)
  1. PROTOPIC [Suspect]
     Indication: LICHEN PLANUS
     Dosage: 0.1%, TOPICAL; SEE IMAGE
     Route: 061
     Dates: start: 20020117, end: 20021114
  2. PROTOPIC [Suspect]
     Indication: LICHEN PLANUS
     Dosage: 0.1%, TOPICAL; SEE IMAGE
     Route: 061
     Dates: start: 20021115, end: 20021121
  3. PROTOPIC [Suspect]
     Indication: LICHEN PLANUS
     Dosage: 0.1%, TOPICAL; SEE IMAGE
     Route: 061
     Dates: start: 20021209, end: 20030206
  4. PREDNISOLONE [Suspect]
     Indication: AUTOIMMUNE HEPATITIS
     Dates: start: 20000101, end: 20000101
  5. PREDNISOLONE [Suspect]
     Indication: AUTOIMMUNE HEPATITIS
     Dates: start: 20030205, end: 20030306
  6. PREDNISOLONE [Suspect]
     Indication: AUTOIMMUNE HEPATITIS
     Dates: start: 20000801
  7. PREDNISOLONE [Suspect]
     Indication: AUTOIMMUNE HEPATITIS
     Dates: start: 20021224
  8. LANSOPRAZOLE [Suspect]
     Dosage: 30 MG, UID/QD, ORAL
     Route: 048
     Dates: start: 20030116, end: 20030206
  9. DIFLUCAN (FLUCONAZOLE) [Concomitant]
  10. EUGLUCON TABLET [Concomitant]
  11. ACTOS /CAN/ (PIOGLITAZONE HYDROCHLORIDE) TABLET [Concomitant]
  12. VANCOMYCIN HYDROCHLORIDE (VANCOMYCIN HYDROCHLORIDE) INJECTION [Concomitant]
  13. SOLU-MEDROL [Concomitant]

REACTIONS (18)
  - AGRANULOCYTOSIS [None]
  - ANAEMIA HAEMOLYTIC AUTOIMMUNE [None]
  - APLASIA PURE RED CELL [None]
  - AUTOIMMUNE HEPATITIS [None]
  - CONDITION AGGRAVATED [None]
  - CSF BACTERIA IDENTIFIED [None]
  - DISEASE RECURRENCE [None]
  - DRUG INEFFECTIVE [None]
  - DRUG LEVEL INCREASED [None]
  - DUODENAL ULCER [None]
  - HAEMOLYTIC URAEMIC SYNDROME [None]
  - LICHEN PLANUS [None]
  - LIVER DISORDER [None]
  - PNEUMONIA BACTERIAL [None]
  - PSEUDOMONAL SEPSIS [None]
  - RENAL IMPAIRMENT [None]
  - SCAR [None]
  - STAPHYLOCOCCAL INFECTION [None]
